FAERS Safety Report 6397127-4 (Version None)
Quarter: 2009Q4

REPORT INFORMATION
  Report Type: 
  Country: None (occurrence: None)
  Receive Date: 20091012
  Receipt Date: 20091001
  Transmission Date: 20100525
  Serious: Yes (Hospitalization)
  Sender: FDA-Public Use
  Company Number: A0810190A

PATIENT
  Age: 73 Year
  Sex: Female
  Weight: 90 kg

DRUGS (3)
  1. LAPATINIB [Suspect]
     Dosage: 1250MG PER DAY
     Route: 048
     Dates: start: 20090129, end: 20090420
  2. CAPECITABINE [Suspect]
     Dosage: 2000MG TWICE PER DAY
     Route: 048
     Dates: start: 20090129, end: 20090420
  3. LOVENOX [Suspect]
     Indication: PULMONARY EMBOLISM
     Dosage: 100MG PER DAY
     Route: 058
     Dates: start: 20090402, end: 20090410

REACTIONS (19)
  - ABDOMINAL DISTENSION [None]
  - ABDOMINAL PAIN [None]
  - ANAEMIA [None]
  - CONTUSION [None]
  - DECREASED APPETITE [None]
  - DIARRHOEA [None]
  - DYSPNOEA [None]
  - FATIGUE [None]
  - HEPATIC NEOPLASM MALIGNANT [None]
  - HYPERGLYCAEMIA [None]
  - HYPERTENSION [None]
  - HYPOALBUMINAEMIA [None]
  - HYPOKALAEMIA [None]
  - HYPOXIA [None]
  - INTRA-ABDOMINAL HAEMATOMA [None]
  - OEDEMA [None]
  - PNEUMONIA [None]
  - PULMONARY EMBOLISM [None]
  - VENOUS THROMBOSIS [None]
